FAERS Safety Report 6018671-5 (Version None)
Quarter: 2008Q4

REPORT INFORMATION
  Report Type: 
  Country: None (occurrence: None)
  Receive Date: 20081223
  Receipt Date: 20081217
  Transmission Date: 20090506
  Serious: Yes (Hospitalization)
  Sender: FDA-Public Use
  Company Number: US-GENENTECH-269956

PATIENT
  Sex: Female
  Weight: 83.9 kg

DRUGS (3)
  1. RITUXAN [Suspect]
     Indication: RHEUMATOID ARTHRITIS
     Dosage: 1000 MG, Q2W X2, THEN EVERY 6 MONTHS
     Route: 042
     Dates: start: 20080501
  2. RITUXAN [Suspect]
     Indication: SJOGREN'S SYNDROME
  3. METHOTREXATE [Concomitant]
     Indication: DRUG USE FOR UNKNOWN INDICATION
     Dosage: 15 MG, 1/WEEK

REACTIONS (1)
  - LEUKOPENIA [None]
